FAERS Safety Report 5940509-2 (Version None)
Quarter: 2008Q4

REPORT INFORMATION
  Report Type: 
  Country: None (occurrence: None)
  Receive Date: 20081103
  Receipt Date: 20081103
  Transmission Date: 20090506
  Serious: No
  Sender: FDA-Public Use
  Company Number: None

PATIENT

DRUGS (3)
  1. FLOVENT HFA [Suspect]
     Dosage: INHALANT
  2. PROAIR HFA [Suspect]
     Dosage: INHALANT
  3. SYMBICORT [Suspect]
     Dosage: INHALENT

REACTIONS (2)
  - CIRCUMSTANCE OR INFORMATION CAPABLE OF LEADING TO MEDICATION ERROR [None]
  - MEDICATION ERROR [None]
